FAERS Safety Report 13757022 (Version 1)
Quarter: 2017Q3

REPORT INFORMATION
  Report Type: Spontaneous
  Country: NO (occurrence: NO)
  Receive Date: 20170714
  Receipt Date: 20170714
  Transmission Date: 20171127
  Serious: Yes (Other)
  Sender: FDA-Public Use
  Company Number: NO-009507513-1707NOR002053

PATIENT
  Age: 6 Decade
  Sex: Female

DRUGS (7)
  1. POSACONAZOLE [Suspect]
     Active Substance: POSACONAZOLE
     Indication: MUCORMYCOSIS
     Dosage: 300 MG, QD
     Route: 042
  2. POSACONAZOLE [Suspect]
     Active Substance: POSACONAZOLE
     Dosage: 400 MG, BID
     Route: 048
  3. POSACONAZOLE [Suspect]
     Active Substance: POSACONAZOLE
     Dosage: 400 MG, BID
     Route: 042
  4. POSACONAZOLE [Suspect]
     Active Substance: POSACONAZOLE
     Dosage: 300 MG, QD
     Route: 048
  5. AMPHOTERICIN B. [Suspect]
     Active Substance: AMPHOTERICIN B
     Dosage: 3 MG/KG, QD
  6. POSACONAZOLE [Suspect]
     Active Substance: POSACONAZOLE
     Dosage: LATER, CHANGED TO ORAL MIXTURE AT THE SAME DOSE
     Route: 042
  7. AMPHOTERICIN B. [Suspect]
     Active Substance: AMPHOTERICIN B
     Indication: MUCORMYCOSIS
     Dosage: 1 MG/KG, QD

REACTIONS (4)
  - Drug ineffective [Unknown]
  - Drug dose omission [Recovering/Resolving]
  - Incorrect dose administered [Unknown]
  - Sepsis [Recovering/Resolving]
